FAERS Safety Report 5724167-8 (Version None)
Quarter: 2008Q2

REPORT INFORMATION
  Report Type: 
  Country: None (occurrence: None)
  Receive Date: 20080430
  Receipt Date: 20080421
  Transmission Date: 20081010
  Serious: Yes (Life-Threatening)
  Sender: FDA-Public Use
  Company Number: US-BAXTER-2008BH004300

PATIENT
  Age: 68 Year
  Sex: Female

DRUGS (1)
  1. ADENOSINE [Suspect]
     Indication: CARDIAC PHARMACOLOGIC STRESS TEST
     Dosage: DOSE UNIT:UNKNOWN
     Route: 042

REACTIONS (3)
  - BRADYCARDIA [None]
  - LOSS OF CONSCIOUSNESS [None]
  - RESPIRATORY ARREST [None]
